FAERS Safety Report 20308669 (Version 4)
Quarter: 2022Q2

REPORT INFORMATION
  Report Type: Report from Study
  Country: US (occurrence: US)
  Receive Date: 20220107
  Receipt Date: 20220408
  Transmission Date: 20220721
  Serious: Yes (Other)
  Sender: FDA-Public Use
  Company Number: US-TAKEDA-2021TUS078209

PATIENT
  Sex: Female
  Weight: 48 kg

DRUGS (26)
  1. HUMAN IMMUNOGLOBULIN G [Suspect]
     Active Substance: HUMAN IMMUNOGLOBULIN G
     Indication: Chronic inflammatory demyelinating polyradiculoneuropathy
     Dosage: 1000 MILLIGRAM/KILOGRAM
     Route: 042
     Dates: start: 20211024
  2. HUMAN IMMUNOGLOBULIN G [Suspect]
     Active Substance: HUMAN IMMUNOGLOBULIN G
     Dosage: 2000 MILLIGRAM/KILOGRAM, Q4WEEKS
     Route: 042
     Dates: start: 20211024
  3. LIDOCAINE [Concomitant]
     Active Substance: LIDOCAINE
  4. VITAMIN D [Concomitant]
     Active Substance: VITAMIN D NOS
  5. DIPHENHYDRAMINE [Concomitant]
     Active Substance: DIPHENHYDRAMINE
  6. MELATONIN [Concomitant]
     Active Substance: MELATONIN
  7. EPINEPHRINE [Concomitant]
     Active Substance: EPINEPHRINE
  8. SODIUM CHLORIDE [Concomitant]
     Active Substance: SODIUM CHLORIDE
  9. LEVOTHYROXINE [Concomitant]
     Active Substance: LEVOTHYROXINE
  10. FLUOXETINE HYDROCHLORIDE [Concomitant]
     Active Substance: FLUOXETINE HYDROCHLORIDE
  11. PREDNISONE [Concomitant]
     Active Substance: PREDNISONE
  12. OMEPRAZOLE [Concomitant]
     Active Substance: OMEPRAZOLE
  13. SODIUM BICARBONATE [Concomitant]
     Active Substance: SODIUM BICARBONATE
  14. ACETAMINOPHEN [Concomitant]
     Active Substance: ACETAMINOPHEN
  15. CARBIDOPA\LEVODOPA [Concomitant]
     Active Substance: CARBIDOPA\LEVODOPA
  16. AMIODARONE HYDROCHLORIDE [Concomitant]
     Active Substance: AMIODARONE HYDROCHLORIDE
  17. FAMOTIDINE [Concomitant]
     Active Substance: FAMOTIDINE
  18. CYANOCOBALAMIN\FOLIC ACID\PYRIDOXINE HYDROCHLORIDE [Concomitant]
     Active Substance: CYANOCOBALAMIN\FOLIC ACID\PYRIDOXINE HYDROCHLORIDE
  19. TYLENOL [Concomitant]
     Active Substance: ACETAMINOPHEN
  20. HEPARIN [Concomitant]
     Active Substance: HEPARIN SODIUM
  21. ASPIRIN [Concomitant]
     Active Substance: ASPIRIN
  22. CHEW-E [Concomitant]
  23. AMLODIPINE BESYLATE [Concomitant]
     Active Substance: AMLODIPINE BESYLATE
  24. FIBER [Concomitant]
     Active Substance: PSYLLIUM HUSK
  25. MEMANTINE [Concomitant]
     Active Substance: MEMANTINE
  26. STOOL SOFTENER (DOCUSATE) [Concomitant]
     Active Substance: DOCUSATE

REACTIONS (9)
  - Cellulitis [Unknown]
  - Syncope [Unknown]
  - Infusion related reaction [Unknown]
  - Blood pressure abnormal [Recovered/Resolved]
  - Off label use [Unknown]
  - Pallor [Recovered/Resolved]
  - Hypertension [Unknown]
  - Fatigue [Unknown]
  - Headache [Unknown]
